FAERS Safety Report 11383736 (Version 2)
Quarter: 2015Q3

REPORT INFORMATION
  Report Type: Report from Study
  Country: CA (occurrence: CA)
  Receive Date: 20150814
  Receipt Date: 20150915
  Transmission Date: 20151125
  Serious: Yes (Hospitalization, Other)
  Sender: FDA-Public Use
  Company Number: CA-GILEAD-2015-0163170

PATIENT
  Age: 54 Year
  Sex: Male

DRUGS (11)
  1. ELTROXIN [Concomitant]
     Active Substance: LEVOTHYROXINE
  2. LYRICA [Concomitant]
     Active Substance: PREGABALIN
  3. FAMPYRA [Concomitant]
     Active Substance: DALFAMPRIDINE
     Indication: MULTIPLE SCLEROSIS
  4. MODAFINIL. [Concomitant]
     Active Substance: MODAFINIL
  5. DETROL [Concomitant]
     Active Substance: TOLTERODINE TARTRATE
  6. ROSUVASTATIN [Concomitant]
     Active Substance: ROSUVASTATIN
  7. CYMBALTA [Concomitant]
     Active Substance: DULOXETINE HYDROCHLORIDE
  8. PREDNISONE. [Concomitant]
     Active Substance: PREDNISONE
  9. IDELALISIB [Suspect]
     Active Substance: IDELALISIB
     Indication: NON-HODGKIN^S LYMPHOMA UNSPECIFIED HISTOLOGY INDOLENT
     Dosage: 150 MG, BID
     Route: 048
     Dates: start: 20150507, end: 20150811
  10. TRAMADOL. [Concomitant]
     Active Substance: TRAMADOL
  11. TAMSULOSIN [Concomitant]
     Active Substance: TAMSULOSIN

REACTIONS (9)
  - Tumour compression [Unknown]
  - Pneumonia [Unknown]
  - Pneumonia viral [Unknown]
  - Pneumonitis [Unknown]
  - Peripheral swelling [Recovering/Resolving]
  - Dyspnoea [Unknown]
  - Muscle spasms [Recovered/Resolved]
  - Oxygen saturation decreased [Unknown]
  - Deep vein thrombosis [Unknown]

NARRATIVE: CASE EVENT DATE: 20150707
